FAERS Safety Report 5698164-5 (Version None)
Quarter: 2008Q2

REPORT INFORMATION
  Report Type: 
  Country: None (occurrence: None)
  Receive Date: 20080403
  Receipt Date: 20080321
  Transmission Date: 20081010
  Serious: Yes (Hospitalization)
  Sender: FDA-Public Use
  Company Number: 000360

PATIENT
  Age: 56 Year
  Sex: Male

DRUGS (5)
  1. BUSULFEX [Suspect]
     Indication: STEM CELL TRANSPLANT
     Dosage: INTRAVENOUS
     Route: 042
     Dates: start: 20070630, end: 20070701
  2. FLUDARABINE PHOSPHATE [Suspect]
  3. METHOTREXATE [Suspect]
  4. TACROLIMUS [Suspect]
  5. MYCOPHENOLATE MOFETIL [Concomitant]

REACTIONS (15)
  - ACUTE GRAFT VERSUS HOST DISEASE [None]
  - ANOREXIA [None]
  - CYSTITIS VIRAL [None]
  - CYTOMEGALOVIRUS ANTIGEN POSITIVE [None]
  - CYTOMEGALOVIRUS VIRAEMIA [None]
  - DIARRHOEA [None]
  - ENTEROCOCCAL SEPSIS [None]
  - HEPATIC FUNCTION ABNORMAL [None]
  - NAUSEA [None]
  - PLATELET COUNT DECREASED [None]
  - RENAL IMPAIRMENT [None]
  - STAPHYLOCOCCAL SEPSIS [None]
  - STEM CELL TRANSPLANT [None]
  - STOMATITIS [None]
  - URETERAL STENT INSERTION [None]
